FAERS Safety Report 9310835 (Version 1)
Quarter: 2013Q2

REPORT INFORMATION
  Report Type: Spontaneous
  Country: US (occurrence: None)
  Receive Date: 20130523
  Receipt Date: 20130523
  Transmission Date: 20140414
  Serious: Yes (Other)
  Sender: FDA-Public Use
  Company Number: None

PATIENT
  Age: 8 Year
  Sex: Female
  Weight: 21.5 kg

DRUGS (2)
  1. MONTELUKAST [Suspect]
     Indication: ASTHMA
  2. MONTELUKAST [Suspect]
     Indication: URTICARIA

REACTIONS (1)
  - Product substitution issue [None]
